FAERS Safety Report 9859761 (Version 2)
Quarter: 2014Q2

REPORT INFORMATION
  Report Type: Report from Study
  Country: US (occurrence: US)
  Receive Date: 20140131
  Receipt Date: 20140425
  Transmission Date: 20141212
  Serious: Yes (Other)
  Sender: FDA-Public Use
  Company Number: US-BRISTOL-MYERS SQUIBB COMPANY-20052585

PATIENT
  Age: 47 Year
  Sex: Male
  Weight: 80.18 kg

DRUGS (1)
  1. IPILIMUMAB [Suspect]
     Indication: MALIGNANT MELANOMA
     Dosage: 240MG:TOTAL DOSE?LAST ADMINISTRATION DATE:23-DEC-2013?IV OVER 90 MIN. ON WEEK 24,6,48,60
     Route: 042
     Dates: start: 20131202

REACTIONS (1)
  - Diplopia [Recovered/Resolved]
